FAERS Safety Report 9729516 (Version 3)
Quarter: 2015Q3

REPORT INFORMATION
  Report Type: Spontaneous
  Country: US (occurrence: US)
  Receive Date: 20131204
  Receipt Date: 20150804
  Transmission Date: 20151125
  Serious: No
  Sender: FDA-Public Use
  Company Number: US-GILEAD-2009-0021394

PATIENT
  Age: 79 Year
  Sex: Female
  Weight: 41.73 kg

DRUGS (12)
  1. LETAIRIS [Suspect]
     Active Substance: AMBRISENTAN
  2. LETAIRIS [Suspect]
     Active Substance: AMBRISENTAN
     Indication: PULMONARY ARTERIAL HYPERTENSION
     Route: 048
     Dates: start: 20080124
  3. FOSAMAX [Concomitant]
     Active Substance: ALENDRONATE SODIUM
  4. METOPROLOL [Concomitant]
     Active Substance: METOPROLOL
  5. VITAMIN D [Concomitant]
     Active Substance: CHOLECALCIFEROL
  6. CALCIUM [Concomitant]
     Active Substance: CALCIUM
  7. NIFEDIPINE. [Concomitant]
     Active Substance: NIFEDIPINE
  8. ASPIRIN. [Concomitant]
     Active Substance: ASPIRIN
  9. NEXIUM [Concomitant]
     Active Substance: ESOMEPRAZOLE MAGNESIUM
  10. ISOSORBIDE. [Concomitant]
     Active Substance: ISOSORBIDE
  11. ATROVENT [Concomitant]
     Active Substance: IPRATROPIUM BROMIDE
  12. PLAQUENIL [Concomitant]
     Active Substance: HYDROXYCHLOROQUINE SULFATE

REACTIONS (4)
  - Nasal congestion [Unknown]
  - Nasal discomfort [Unknown]
  - Sinus disorder [Unknown]
  - Upper-airway cough syndrome [Unknown]
